FAERS Safety Report 6065170-0 (Version None)
Quarter: 2009Q1

REPORT INFORMATION
  Report Type: 
  Country: None (occurrence: None)
  Receive Date: 20090204
  Receipt Date: 20090123
  Transmission Date: 20090719
  Serious: Yes (Other)
  Sender: FDA-Public Use
  Company Number: US-WYE-H07872509

PATIENT
  Sex: Female
  Weight: 33.14 kg

DRUGS (1)
  1. PREMARIN [Suspect]
     Indication: GENITAL LABIAL ADHESIONS
     Dosage: A ^DAB^ TWO TIMES A YEAR FOR A WEEK AT A TIME , USING ABOUT 1 1/2 TUBES OF PVC OVER FIVE YEARS
     Route: 061
     Dates: start: 20020801

REACTIONS (3)
  - OFF LABEL USE [None]
  - PRECOCIOUS PUBERTY [None]
  - TYPE 1 DIABETES MELLITUS [None]
